FAERS Safety Report 16102605 (Version 1)
Quarter: 2019Q1

REPORT INFORMATION
  Report Type: Spontaneous
  Country: BR (occurrence: BR)
  Receive Date: 20190321
  Receipt Date: 20190321
  Transmission Date: 20190418
  Serious: Yes (Hospitalization, Disabling)
  Sender: FDA-Public Use
  Company Number: BR-009507513-1902BRA012222

PATIENT
  Age: 79 Year
  Sex: Female
  Weight: 59 kg

DRUGS (18)
  1. GALANTAMINE. [Concomitant]
     Active Substance: GALANTAMINE
     Indication: DEMENTIA
     Dosage: 1 TABLET ORALLY PER DAY
     Route: 048
     Dates: start: 2010
  2. XARELTO [Concomitant]
     Active Substance: RIVAROXABAN
     Indication: CEREBROVASCULAR ACCIDENT PROPHYLAXIS
     Dosage: 1 TABLET PER DAY, ORALLY
     Route: 048
     Dates: start: 1984
  3. SOTALOL. [Concomitant]
     Active Substance: SOTALOL
     Indication: CEREBROVASCULAR ACCIDENT PROPHYLAXIS
     Dosage: 2 TABLETS PER DAY, ORALLY
     Route: 048
     Dates: start: 1984
  4. QUETIAPINE FUMARATE. [Concomitant]
     Active Substance: QUETIAPINE FUMARATE
     Indication: DEMENTIA
     Dosage: 2 TABLETS ORALLY PER DAY
     Route: 048
     Dates: start: 2010
  5. MIRTAZAPINE. [Concomitant]
     Active Substance: MIRTAZAPINE
     Indication: SLEEP DISORDER THERAPY
     Dosage: 1 TABLET ORALLY PER DAY
     Route: 048
     Dates: start: 2010
  6. INSULIN [Concomitant]
     Active Substance: INSULIN NOS
     Indication: TYPE 1 DIABETES MELLITUS
     Dosage: UNK
     Dates: start: 1984
  7. MEMANTINE. [Concomitant]
     Active Substance: MEMANTINE
     Indication: DEMENTIA
     Dosage: 2 TABLETS ORALLY PER DAY
     Route: 048
     Dates: start: 2010
  8. DONAREN [Concomitant]
     Active Substance: TRAZODONE HYDROCHLORIDE
     Indication: ANTIDEPRESSANT THERAPY
     Dosage: 2 TABLETS ORALLY PER DAY
     Route: 048
     Dates: start: 2010
  9. LEVOTHYROXINE SODIUM. [Concomitant]
     Active Substance: LEVOTHYROXINE SODIUM
     Indication: HYPOTHYROIDISM
     Dosage: 1 TABLET ORALLY PER DAY
     Route: 048
     Dates: start: 1984
  10. SERTRALINE HYDROCHLORIDE. [Concomitant]
     Active Substance: SERTRALINE HYDROCHLORIDE
     Indication: ANTIDEPRESSANT THERAPY
     Dosage: 2 TABLETS ORALLY PER DAY
     Dates: start: 2010
  11. INVANZ [Suspect]
     Active Substance: ERTAPENEM SODIUM
     Indication: URINARY TRACT INFECTION
     Dosage: 5 DOSES
     Dates: start: 201901, end: 201901
  12. INVANZ [Suspect]
     Active Substance: ERTAPENEM SODIUM
     Dosage: UNK
     Dates: start: 20190215, end: 20190221
  13. ROSUVASTATIN. [Concomitant]
     Active Substance: ROSUVASTATIN
     Indication: CEREBROVASCULAR ACCIDENT PROPHYLAXIS
     Dosage: 1 TABLET PER DAY, ORALLY
     Route: 048
     Dates: start: 1984
  14. CILOSTAZOL. [Concomitant]
     Active Substance: CILOSTAZOL
     Indication: PROMOTION OF PERIPHERAL CIRCULATION
     Dosage: 1 TABLET PER DAY, ORALLY
     Route: 048
     Dates: start: 2018
  15. MIRTAZAPINE. [Concomitant]
     Active Substance: MIRTAZAPINE
     Indication: ANTIDEPRESSANT THERAPY
  16. ALENDRONATE SODIUM. [Concomitant]
     Active Substance: ALENDRONATE SODIUM
     Indication: BLOOD CALCIUM ABNORMAL
     Dosage: 1 TABLET PER WEEK, ORALLY
     Route: 048
  17. CILOSTAZOL. [Concomitant]
     Active Substance: CILOSTAZOL
     Indication: POOR PERIPHERAL CIRCULATION
  18. FOLIC ACID. [Concomitant]
     Active Substance: FOLIC ACID
     Indication: VITAMIN SUPPLEMENTATION
     Dosage: 1 TABLET ORALLY PER DAY
     Route: 048

REACTIONS (9)
  - Oral mucosal erythema [Recovered/Resolved]
  - Incorrect drug administration rate [Unknown]
  - Amnesia [Recovered/Resolved]
  - Gait inability [Recovered/Resolved]
  - Tremor [Recovering/Resolving]
  - Pain in extremity [Recovered/Resolved]
  - Urinary tract infection [Unknown]
  - Muscle spasms [Not Recovered/Not Resolved]
  - Miliaria [Not Recovered/Not Resolved]

NARRATIVE: CASE EVENT DATE: 2019
